FAERS Safety Report 5533392-0 (Version None)
Quarter: 2007Q4

REPORT INFORMATION
  Report Type: 
  Country: None (occurrence: None)
  Receive Date: 20071204
  Receipt Date: 20071123
  Transmission Date: 20080405
  Serious: Yes (Death, Life-Threatening, Other)
  Sender: FDA-Public Use
  Company Number: GB-JNJFOC-20071109850

PATIENT
  Sex: Female
  Weight: 48 kg

DRUGS (5)
  1. REMICADE [Suspect]
     Indication: RHEUMATOID ARTHRITIS
     Route: 042
  2. PREDNISONE TAB [Concomitant]
  3. DIDRONEL [Concomitant]
  4. SULFASALAZINE [Concomitant]
  5. MOBIC [Concomitant]

REACTIONS (3)
  - ENTEROCOLITIS BACTERIAL [None]
  - FEMORAL NECK FRACTURE [None]
  - PNEUMONIA ASPIRATION [None]
